FAERS Safety Report 19135886 (Version 2)
Quarter: 2021Q2

REPORT INFORMATION
  Report Type: Spontaneous
  Country: US (occurrence: US)
  Receive Date: 20210414
  Receipt Date: 20210615
  Transmission Date: 20210717
  Serious: Yes (Hospitalization, Other)
  Sender: FDA-Public Use
  Company Number: US-ASTRAZENECA-2021A287313

PATIENT
  Sex: Female
  Weight: 120.2 kg

DRUGS (2)
  1. BYETTA [Suspect]
     Active Substance: EXENATIDE
     Indication: BLOOD INSULIN
     Route: 065
  2. HUMALOG [Concomitant]
     Active Substance: INSULIN LISPRO

REACTIONS (9)
  - Tibia fracture [Recovered/Resolved]
  - Device malfunction [Unknown]
  - Femur fracture [Recovered/Resolved with Sequelae]
  - Infection [Unknown]
  - Ankle fracture [Unknown]
  - Fibula fracture [Recovered/Resolved]
  - Fall [Unknown]
  - Swelling [Unknown]
  - Neuropathy peripheral [Not Recovered/Not Resolved]
